FAERS Safety Report 5616542-7 (Version None)
Quarter: 2008Q1

REPORT INFORMATION
  Report Type: 
  Country: None (occurrence: None)
  Receive Date: 20080204
  Receipt Date: 20080125
  Transmission Date: 20080703
  Serious: Yes (Hospitalization)
  Sender: FDA-Public Use
  Company Number: TIF2008A00022

PATIENT
  Age: 77 Year
  Sex: Female

DRUGS (8)
  1. ACTOS [Suspect]
     Indication: DIABETES MELLITUS
     Dosage: 30 MG (30 MG, 1 IN 1 D) ORAL
     Route: 048
     Dates: start: 20070928, end: 20071005
  2. SODIUM BICARBONATE IN PLASTIC CONTAINER [Concomitant]
  3. ACETYLSALICYLIC ACID SRT [Concomitant]
  4. CARVIPRESS (CARVEDILOL) [Concomitant]
  5. CRESTOR [Concomitant]
  6. CLICONORM [Concomitant]
  7. LASIX [Concomitant]
  8. TRIATEC HTC (RAMIPRIL) [Concomitant]

REACTIONS (2)
  - CONDITION AGGRAVATED [None]
  - RENAL FAILURE CHRONIC [None]
